FAERS Safety Report 5328654-6 (Version None)
Quarter: 2007Q2

REPORT INFORMATION
  Report Type: 
  Country: None (occurrence: None)
  Receive Date: 20070518
  Receipt Date: 20070419
  Transmission Date: 20071010
  Serious: Yes (Other)
  Sender: FDA-Public Use
  Company Number: JP-ROCHE-490872

PATIENT
  Age: 13 Year
  Sex: Male

DRUGS (4)
  1. TAMIFLU [Suspect]
     Route: 048
     Dates: start: 20070315, end: 20070315
  2. LOXONIN [Concomitant]
     Route: 048
  3. ZYRTEC [Concomitant]
     Route: 048
  4. ASVERIN [Concomitant]
     Route: 048

REACTIONS (1)
  - ABNORMAL BEHAVIOUR [None]
